FAERS Safety Report 17818389 (Version 1)
Quarter: 2020Q2

REPORT INFORMATION
  Report Type: Spontaneous
  Country: FR (occurrence: FR)
  Receive Date: 20200522
  Receipt Date: 20200522
  Transmission Date: 20200714
  Serious: Yes (Other)
  Sender: FDA-Public Use
  Company Number: NVSC2020FR082559

PATIENT
  Age: 48 Year
  Sex: Female

DRUGS (21)
  1. TRASTUZUMAB. [Suspect]
     Active Substance: TRASTUZUMAB
     Indication: METASTASES TO LIVER
     Dosage: UNK
     Route: 065
     Dates: end: 201710
  2. TAMOXIFEN [Suspect]
     Active Substance: TAMOXIFEN
     Indication: METASTASES TO LIVER
  3. LETROZOLE. [Suspect]
     Active Substance: LETROZOLE
     Indication: METASTASES TO LIVER
  4. TRASTUZUMAB. [Suspect]
     Active Substance: TRASTUZUMAB
     Indication: HER2 POSITIVE BREAST CANCER
  5. LAPATINIB [Suspect]
     Active Substance: LAPATINIB
     Indication: HER2 POSITIVE BREAST CANCER
  6. TRIPTORELIN [Suspect]
     Active Substance: TRIPTORELIN
     Indication: METASTASES TO BONE
  7. CAPECITABINE. [Suspect]
     Active Substance: CAPECITABINE
     Indication: METASTASES TO LIVER
     Route: 065
  8. TRASTUZUMAB. [Suspect]
     Active Substance: TRASTUZUMAB
     Indication: METASTASES TO BONE
  9. DOCETAXEL. [Suspect]
     Active Substance: DOCETAXEL
     Indication: INVASIVE DUCTAL BREAST CARCINOMA
     Dosage: UNK
     Route: 065
  10. DOCETAXEL. [Suspect]
     Active Substance: DOCETAXEL
     Indication: METASTASES TO BONE
  11. TRIPTORELIN [Suspect]
     Active Substance: TRIPTORELIN
     Indication: METASTASES TO LIVER
  12. LETROZOLE. [Suspect]
     Active Substance: LETROZOLE
     Indication: METASTASES TO BONE
  13. CAPECITABINE. [Suspect]
     Active Substance: CAPECITABINE
     Indication: HER2 POSITIVE BREAST CANCER
  14. TAMOXIFEN [Suspect]
     Active Substance: TAMOXIFEN
     Indication: INVASIVE DUCTAL BREAST CARCINOMA
     Dosage: UNK
     Route: 065
  15. TAMOXIFEN [Suspect]
     Active Substance: TAMOXIFEN
     Indication: METASTASES TO BONE
  16. LAPATINIB [Suspect]
     Active Substance: LAPATINIB
     Indication: METASTASES TO LIVER
  17. CAPECITABINE. [Suspect]
     Active Substance: CAPECITABINE
     Indication: METASTASES TO BONE
  18. LAPATINIB [Suspect]
     Active Substance: LAPATINIB
     Indication: METASTASES TO BONE
     Dosage: UNK
     Route: 065
  19. TRIPTORELIN [Suspect]
     Active Substance: TRIPTORELIN
     Indication: INVASIVE DUCTAL BREAST CARCINOMA
     Dosage: UNK
     Route: 065
  20. LETROZOLE. [Suspect]
     Active Substance: LETROZOLE
     Indication: INVASIVE DUCTAL BREAST CARCINOMA
     Dosage: UNK
     Route: 065
  21. DOCETAXEL. [Suspect]
     Active Substance: DOCETAXEL
     Indication: METASTASES TO LIVER

REACTIONS (11)
  - Oedema peripheral [Recovered/Resolved]
  - Invasive ductal breast carcinoma [Unknown]
  - Malignant neoplasm progression [Unknown]
  - Cholestasis [Recovered/Resolved]
  - Non-cirrhotic portal hypertension [Recovered/Resolved]
  - Thrombocytopenia [Unknown]
  - Aspartate aminotransferase increased [Unknown]
  - Alanine aminotransferase increased [Recovered/Resolved]
  - Venoocclusive liver disease [Recovered/Resolved]
  - Blood bilirubin increased [Unknown]
  - Ascites [Recovered/Resolved]

NARRATIVE: CASE EVENT DATE: 201307
